FAERS Safety Report 7420245-6 (Version None)
Quarter: 2011Q2

REPORT INFORMATION
  Report Type: 
  Country: None (occurrence: None)
  Receive Date: 20110418
  Receipt Date: 20110405
  Transmission Date: 20111010
  Serious: Yes (Death, Other)
  Sender: FDA-Public Use
  Company Number: PL-JNJFOC-20110406289

PATIENT
  Age: 43 Year
  Sex: Female

DRUGS (2)
  1. 2-CHLORODEOXYADENOSINE [Suspect]
     Dosage: 0.12 MG/KG (7 MG/D) (1 CYCLE= 5 DAYS)
     Route: 065
  2. 2-CHLORODEOXYADENOSINE [Suspect]
     Indication: MYCOSIS FUNGOIDES
     Dosage: 0.12 MG/KG (7 MG/D) (1 CYCLE= 5 DAYS)
     Route: 065

REACTIONS (3)
  - STAPHYLOCOCCAL SEPSIS [None]
  - BONE MARROW FAILURE [None]
  - NO THERAPEUTIC RESPONSE [None]
